FAERS Safety Report 7674262-1 (Version None)
Quarter: 2011Q3

REPORT INFORMATION
  Report Type: 
  Country: None (occurrence: None)
  Receive Date: 20110810
  Receipt Date: 20110805
  Transmission Date: 20111222
  Serious: Yes (Other)
  Sender: FDA-Public Use
  Company Number: US-PFIZER INC-2011179995

PATIENT
  Sex: Female
  Weight: 58.05 kg

DRUGS (7)
  1. PREMARIN [Suspect]
     Indication: MENOPAUSE
  2. PREMARIN [Suspect]
     Indication: VAGINAL DISORDER
  3. PREMARIN [Suspect]
     Indication: VULVOVAGINAL BURNING SENSATION
     Dosage: UNK, 2X/WEEK
     Dates: start: 20110401
  4. ADVIL LIQUI-GELS [Concomitant]
     Dosage: UNK
  5. MULTI-VITAMINS [Concomitant]
     Dosage: UNK
  6. CALCIUM [Concomitant]
     Dosage: UNK
  7. NAPROXEN (ALEVE) [Concomitant]
     Dosage: UNK

REACTIONS (1)
  - ROTATOR CUFF SYNDROME [None]
